FAERS Safety Report 15754464 (Version 2)
Quarter: 2019Q3

REPORT INFORMATION
  Report Type: Spontaneous
  Country: US (occurrence: US)
  Receive Date: 20181224
  Receipt Date: 20190821
  Transmission Date: 20191004
  Serious: Yes (Other)
  Sender: FDA-Public Use
  Company Number: US-PFIZER INC-2018501750

PATIENT
  Age: 71 Year
  Sex: Female
  Weight: 103.42 kg

DRUGS (1)
  1. IBRANCE [Suspect]
     Active Substance: PALBOCICLIB
     Indication: BREAST CANCER METASTATIC
     Dosage: 125 MG, CYCLIC [ONCE DAILY FOR 21 DAYS, FOLLOWED BY 7 DAYS OFF OFF]
     Dates: start: 2017

REACTIONS (2)
  - Blindness [Unknown]
  - Malaise [Unknown]
